FAERS Safety Report 6428493-9 (Version None)
Quarter: 2009Q4

REPORT INFORMATION
  Report Type: 
  Country: None (occurrence: None)
  Receive Date: 20091104
  Receipt Date: 20091104
  Transmission Date: 20100525
  Serious: Yes (Hospitalization)
  Sender: FDA-Public Use
  Company Number: None

PATIENT
  Age: 66 Year

DRUGS (1)
  1. NILOTINIB [Suspect]
     Indication: CHRONIC MYELOID LEUKAEMIA
     Dosage: 400 MG BID PO
     Route: 048
     Dates: start: 20081212, end: 20090122

REACTIONS (3)
  - ADRENAL INSUFFICIENCY [None]
  - DIZZINESS [None]
  - HEADACHE [None]
